FAERS Safety Report 25764393 (Version 1)
Quarter: 2025Q3

REPORT INFORMATION
  Report Type: Spontaneous
  Country: US (occurrence: US)
  Receive Date: 20250905
  Receipt Date: 20250905
  Transmission Date: 20251021
  Serious: No
  Sender: DOMPE FARMACEUTICI
  Company Number: US-FARMAPROD-202502-0454

PATIENT
  Age: 67 Year
  Sex: Female

DRUGS (21)
  1. OXERVATE [Suspect]
     Active Substance: CENEGERMIN-BKBJ
     Indication: Neurotrophic keratopathy
     Route: 047
     Dates: start: 20250116
  2. ONDANSETRON HYDROCHLORIDE [Concomitant]
     Active Substance: ONDANSETRON HYDROCHLORIDE
  3. LIDOCAINE HYDROCHLORIDE [Concomitant]
     Active Substance: LIDOCAINE HYDROCHLORIDE
  4. ALLEGRA ALLERGY [Concomitant]
     Active Substance: FEXOFENADINE HYDROCHLORIDE
  5. EPINEPHRINE [Concomitant]
     Active Substance: EPINEPHRINE
  6. TYLENOL EXTRA STRENGTH [Concomitant]
     Active Substance: ACETAMINOPHEN
  7. DAPSONE [Concomitant]
     Active Substance: DAPSONE
  8. CLOBETASOL PROPIONATE [Concomitant]
     Active Substance: CLOBETASOL PROPIONATE
  9. CYCLOSPORINE [Concomitant]
     Active Substance: CYCLOSPORINE
  10. VALTREX [Concomitant]
     Active Substance: VALACYCLOVIR HYDROCHLORIDE
  11. PEPCID [Concomitant]
     Active Substance: FAMOTIDINE
  12. REMICADE [Concomitant]
     Active Substance: INFLIXIMAB
  13. LOSARTAN POTASSIUM [Concomitant]
     Active Substance: LOSARTAN POTASSIUM
  14. PROLIA [Concomitant]
     Active Substance: DENOSUMAB
  15. CULTURELLE [Concomitant]
     Active Substance: LACTOBACILLUS RHAMNOSUS
  16. ALBUTEROL SULFATE [Concomitant]
     Active Substance: ALBUTEROL SULFATE
  17. REFRESH OPTIVE MEGA-3 [Concomitant]
     Active Substance: CARBOXYMETHYLCELLULOSE SODIUM\GLYCERIN\POLYSORBATE 80
  18. RINVOQ [Concomitant]
     Active Substance: UPADACITINIB
  19. LYRICA [Concomitant]
     Active Substance: PREGABALIN
  20. SYMBICORT [Concomitant]
     Active Substance: BUDESONIDE\FORMOTEROL FUMARATE DIHYDRATE
  21. MYCOPHENOLATE MOFETIL [Concomitant]
     Active Substance: MYCOPHENOLATE MOFETIL

REACTIONS (2)
  - Eye irritation [Unknown]
  - Product administration error [Unknown]

NARRATIVE: CASE EVENT DATE: 20250210
